FAERS Safety Report 21385027 (Version 1)
Quarter: 2022Q3

REPORT INFORMATION
  Report Type: Spontaneous
  Country: US (occurrence: US)
  Receive Date: 20220928
  Receipt Date: 20220928
  Transmission Date: 20221027
  Serious: Yes (Other)
  Sender: FDA-Public Use
  Company Number: US-SANOFI-01292483

PATIENT
  Age: 50 Year
  Sex: Male

DRUGS (1)
  1. DUPIXENT [Suspect]
     Active Substance: DUPILUMAB
     Indication: Nasal polyps
     Dosage: 300 MG, QOW
     Route: 065
     Dates: start: 202207, end: 202209

REACTIONS (6)
  - Pneumonia [Unknown]
  - Pain [Unknown]
  - Illness [Unknown]
  - Laboratory test abnormal [Unknown]
  - Arthralgia [Unknown]
  - Eosinophilia [Unknown]

NARRATIVE: CASE EVENT DATE: 20220901
